FAERS Safety Report 5115064-X (Version None)
Quarter: 2006Q3

REPORT INFORMATION
  Report Type: 
  Country: None (occurrence: None)
  Receive Date: 20060925
  Receipt Date: 20060925
  Transmission Date: 20061208
  Serious: Yes (Life-Threatening, Hospitalization)
  Sender: FDA-Public Use
  Company Number: None

PATIENT
  Age: 27 Year
  Sex: Female
  Weight: 102.0593 kg

DRUGS (1)
  1. ORTHO EVRA [Suspect]
     Indication: CONTRACEPTION
     Dosage: 1 PATCH   WEEKLY    TRANSDERMAL
     Route: 062
     Dates: start: 20060501, end: 20060601

REACTIONS (5)
  - CEREBRAL HAEMORRHAGE [None]
  - CEREBRAL THROMBOSIS [None]
  - CONVULSION [None]
  - PERITONSILLAR ABSCESS [None]
  - PROCEDURAL COMPLICATION [None]
